FAERS Safety Report 20737291 (Version 1)
Quarter: 2022Q2

REPORT INFORMATION
  Report Type: Spontaneous
  Country: HR (occurrence: HR)
  Receive Date: 20220421
  Receipt Date: 20220421
  Transmission Date: 20220721
  Serious: Yes (Hospitalization, Other)
  Sender: FDA-Public Use
  Company Number: HR-CELLTRION INC.-2022HR004559

PATIENT

DRUGS (8)
  1. RITUXIMAB [Suspect]
     Active Substance: RITUXIMAB
     Indication: Myelitis transverse
     Dosage: TWO DOSES OF RITUXIMAB (500 MG PER DOSE, TWO WEEKS APART)
  2. RITUXIMAB [Suspect]
     Active Substance: RITUXIMAB
     Indication: Systemic lupus erythematosus
     Dosage: TWO DOSES OF RITUXIMAB (500 MG PER DOSE, TWO WEEKS APART)
  3. METHYLPREDNISOLONE [Suspect]
     Active Substance: METHYLPREDNISOLONE
     Indication: Myelitis transverse
     Dosage: INTRAVENOUS PULSES OF METHYLPREDNISOLONE WERE ADMINISTERED
     Route: 042
  4. METHYLPREDNISOLONE [Suspect]
     Active Substance: METHYLPREDNISOLONE
     Indication: Systemic lupus erythematosus
  5. CYCLOPHOSPHAMIDE [Suspect]
     Active Substance: CYCLOPHOSPHAMIDE
     Indication: Myelitis transverse
     Dosage: ADMINISTERED AT A DOSE OF 1000 MG PARENTERALLY
  6. CYCLOPHOSPHAMIDE [Suspect]
     Active Substance: CYCLOPHOSPHAMIDE
     Indication: Systemic lupus erythematosus
  7. HUMAN IMMUNOGLOBULIN G [Suspect]
     Active Substance: HUMAN IMMUNOGLOBULIN G
     Indication: Myelitis transverse
     Dosage: INTRAVENOUS IMMUNOGLOBULINS (IVIG) AT AN IMMUNOMODULATORY DOSE OF A TOTAL OF 100 G (SPREAD OVER SEVE
     Route: 042
  8. HUMAN IMMUNOGLOBULIN G [Suspect]
     Active Substance: HUMAN IMMUNOGLOBULIN G
     Indication: Systemic lupus erythematosus

REACTIONS (3)
  - Pneumonia [Recovered/Resolved]
  - Drug effective for unapproved indication [Unknown]
  - Off label use [Unknown]
